FAERS Safety Report 22353756 (Version 1)
Quarter: 2023Q2

REPORT INFORMATION
  Report Type: Spontaneous
  Country: GB (occurrence: None)
  Receive Date: 20230523
  Receipt Date: 20230523
  Transmission Date: 20230721
  Serious: Yes (Congenital Anomaly, Other)
  Sender: FDA-Public Use
  Company Number: GB-ROCHE-3340171

PATIENT
  Age: 84 Year
  Sex: Male

DRUGS (1)
  1. VABYSMO [Suspect]
     Active Substance: FARICIMAB-SVOA
     Indication: Neovascular age-related macular degeneration
     Route: 050
     Dates: start: 20221014, end: 20221212

REACTIONS (3)
  - Cerebrovascular accident [Unknown]
  - Vitreous disorder [Unknown]
  - Non-infectious endophthalmitis [Unknown]

NARRATIVE: CASE EVENT DATE: 20221214
